FAERS Safety Report 6145127-1 (Version None)
Quarter: 2009Q2

REPORT INFORMATION
  Report Type: 
  Country: None (occurrence: None)
  Receive Date: 20090402
  Receipt Date: 20090402
  Transmission Date: 20091009
  Serious: No
  Sender: FDA-Public Use
  Company Number: None

PATIENT

DRUGS (1)
  1. NICODERM CQ [Suspect]
     Dosage: 21 MG/DAY DAILY TOP VARIABLE PER PATIENT
     Route: 061
     Dates: start: 20090401, end: 20090401

REACTIONS (1)
  - APPLICATION SITE RASH [None]
